FAERS Safety Report 19542902 (Version 1)
Quarter: 2021Q3

REPORT INFORMATION
  Report Type: Spontaneous
  Country: RO (occurrence: RO)
  Receive Date: 20210713
  Receipt Date: 20210713
  Transmission Date: 20211014
  Serious: Yes (Other)
  Sender: FDA-Public Use
  Company Number: RO-LUPIN PHARMACEUTICALS INC.-2021-11425

PATIENT
  Age: 21 Year
  Sex: Female

DRUGS (4)
  1. TRAMADOL. [Suspect]
     Active Substance: TRAMADOL
     Indication: CHEST PAIN
     Dosage: UNK
     Route: 042
  2. CODEINE [Suspect]
     Active Substance: CODEINE
     Indication: CHEST PAIN
     Dosage: UNK
     Route: 042
  3. ACETAMINOPHEN. [Suspect]
     Active Substance: ACETAMINOPHEN
     Indication: CHEST PAIN
     Dosage: UNK
     Route: 042
  4. METAMIZOLE [Suspect]
     Active Substance: METAMIZOLE
     Indication: CHEST PAIN
     Dosage: UNK
     Route: 042

REACTIONS (2)
  - Premature delivery [Unknown]
  - Exposure during pregnancy [Unknown]
